FAERS Safety Report 9625690 (Version 1)
Quarter: 2013Q4

REPORT INFORMATION
  Report Type: Spontaneous
  Country: CA (occurrence: CA)
  Receive Date: 20131016
  Receipt Date: 20131016
  Transmission Date: 20140711
  Serious: Yes (Other)
  Sender: FDA-Public Use
  Company Number: CA-JNJFOC-20131003406

PATIENT
  Age: 37 Year
  Sex: Female
  Weight: 61 kg

DRUGS (7)
  1. NUCYNTA CR [Suspect]
     Indication: BACK PAIN
     Dosage: TWICE DAILY
     Route: 048
     Dates: start: 20120920, end: 20131008
  2. CYMBALTA [Interacting]
     Indication: PAIN
     Dosage: PER DAY
     Route: 048
     Dates: end: 20131008
  3. CYMBALTA [Interacting]
     Indication: PAIN
     Dosage: PER DAY
     Route: 048
     Dates: start: 20120416
  4. TORADOL [Concomitant]
     Route: 048
  5. WELLBUTRIN  XL [Concomitant]
     Route: 048
  6. AMITRIPTYLINE [Concomitant]
     Route: 048
  7. ZOPICLONE [Concomitant]
     Route: 048

REACTIONS (3)
  - Tooth loss [Unknown]
  - Gingivitis [Unknown]
  - Drug interaction [Unknown]
